FAERS Safety Report 9650819 (Version 1)
Quarter: 2013Q4

REPORT INFORMATION
  Report Type: Spontaneous
  Country: US (occurrence: US)
  Receive Date: 20131029
  Receipt Date: 20131029
  Transmission Date: 20140711
  Serious: No
  Sender: FDA-Public Use
  Company Number: US-009507513-1310USA012957

PATIENT
  Sex: Female

DRUGS (1)
  1. JANUMET XR [Suspect]
     Indication: DIABETES MELLITUS
     Dosage: 2 DF, QD
     Route: 048

REACTIONS (2)
  - Inappropriate schedule of drug administration [Unknown]
  - Drug ineffective [Unknown]
